FAERS Safety Report 9647643 (Version 1)
Quarter: 2013Q4

REPORT INFORMATION
  Report Type: Spontaneous
  Country: CA (occurrence: CA)
  Receive Date: 20131028
  Receipt Date: 20131028
  Transmission Date: 20140711
  Serious: Yes (Life-Threatening, Other)
  Sender: FDA-Public Use
  Company Number: CA-ROCHE-1294153

PATIENT
  Sex: Male

DRUGS (4)
  1. RITUXAN [Suspect]
     Indication: VASCULITIS
     Dosage: CYCLE IS EVERY 4 TO 6 MONTHS
     Route: 065
  2. METHOTREXATE [Concomitant]
  3. PREDNISONE [Concomitant]
     Dosage: 15-20MG
     Route: 065
  4. CYCLOPHOSPHAMIDE [Concomitant]

REACTIONS (4)
  - Pulmonary embolism [Recovered/Resolved]
  - Herpes simplex meningoencephalitis [Recovering/Resolving]
  - Respiratory disorder [Unknown]
  - Pneumonia [Recovering/Resolving]
